FAERS Safety Report 5243151-4 (Version None)
Quarter: 2007Q1

REPORT INFORMATION
  Report Type: 
  Country: None (occurrence: None)
  Receive Date: 20070213
  Receipt Date: 20070201
  Transmission Date: 20070707
  Serious: Yes (Death, Hospitalization)
  Sender: FDA-Public Use
  Company Number: GXKR2007HK01410

PATIENT
  Age: 82 Year
  Sex: Female

DRUGS (2)
  1. CLARITHROMYCIN [Suspect]
     Indication: PNEUMONIA
     Dosage: 500 MG, BID, ORAL
     Route: 048
  2. COLCHICINE(COLCHICINE) [Suspect]
     Indication: GOUT
     Dosage: 0.5 MG, TID, ORAL
     Route: 048

REACTIONS (7)
  - DIARRHOEA [None]
  - DRUG INTERACTION [None]
  - GOUT [None]
  - NAUSEA [None]
  - RECTAL ABSCESS [None]
  - RESPIRATORY FAILURE [None]
  - VOMITING [None]
